FAERS Safety Report 9124260 (Version 1)
Quarter: 2013Q1

REPORT INFORMATION
  Report Type: Spontaneous
  Country: IT (occurrence: IT)
  Receive Date: 20130116
  Receipt Date: 20130116
  Transmission Date: 20140127
  Serious: Yes (Hospitalization)
  Sender: FDA-Public Use
  Company Number: IT-ASTRAZENECA-2013SE01532

PATIENT
  Age: 30416 Day
  Sex: Female

DRUGS (3)
  1. ATENOLOL [Suspect]
     Indication: HYPERTENSION
     Route: 048
     Dates: start: 20121216, end: 20121218
  2. COUMADIN [Concomitant]
  3. LASIX [Concomitant]

REACTIONS (1)
  - Atrioventricular block second degree [Recovering/Resolving]
